FAERS Safety Report 19861729 (Version 1)
Quarter: 2021Q3

REPORT INFORMATION
  Report Type: Spontaneous
  Country: US (occurrence: US)
  Receive Date: 20210920
  Receipt Date: 20210920
  Transmission Date: 20211014
  Serious: Yes (Other)
  Sender: FDA-Public Use
  Company Number: US-ABBVIE-21K-163-4086899-00

PATIENT

DRUGS (1)
  1. IBRUTINIB [Suspect]
     Active Substance: IBRUTINIB
     Indication: CHRONIC GRAFT VERSUS HOST DISEASE
     Route: 048

REACTIONS (29)
  - Enterocolitis [Unknown]
  - Diarrhoea [Unknown]
  - Epistaxis [Unknown]
  - Abdominal pain [Unknown]
  - Memory impairment [Unknown]
  - Respiratory failure [Unknown]
  - Skin infection [Unknown]
  - Platelet count decreased [Unknown]
  - Sepsis [Unknown]
  - Rash [Unknown]
  - Vomiting [Unknown]
  - Cardiomyopathy [Unknown]
  - Acute kidney injury [Unknown]
  - Herpes zoster [Unknown]
  - Presyncope [Unknown]
  - Pneumonia [Unknown]
  - Lower gastrointestinal haemorrhage [Unknown]
  - Upper respiratory tract infection [Unknown]
  - Atrial fibrillation [Unknown]
  - Fall [Unknown]
  - Infective myositis [Unknown]
  - Muscle spasms [Unknown]
  - Haematoma [Unknown]
  - Purpura [Unknown]
  - Supraventricular tachycardia [Unknown]
  - Haemorrhage [Unknown]
  - Fatigue [Unknown]
  - Abdominal infection [Unknown]
  - Contusion [Unknown]
